FAERS Safety Report 5636181-1 (Version None)
Quarter: 2008Q1

REPORT INFORMATION
  Report Type: 
  Country: None (occurrence: None)
  Receive Date: 20080221
  Receipt Date: 20080221
  Transmission Date: 20080703
  Serious: Yes (Disabling)
  Sender: FDA-Public Use
  Company Number: None

PATIENT
  Age: 64 Year
  Sex: Male
  Weight: 78.4723 kg

DRUGS (1)
  1. VIAGRA [Suspect]
     Indication: ERECTILE DYSFUNCTION
     Dosage: 100MG REDUCED TO 50MG AFTER 3 OR 4 YEARS AVERAGE 12/YEAR
     Dates: start: 19980701, end: 20070901

REACTIONS (2)
  - CONTRAINDICATION TO MEDICAL TREATMENT [None]
  - DEAFNESS UNILATERAL [None]
